FAERS Safety Report 8133404-4 (Version None)
Quarter: 2012Q1

REPORT INFORMATION
  Report Type: 
  Country: None (occurrence: None)
  Receive Date: 20120213
  Receipt Date: 20120206
  Transmission Date: 20120608
  Serious: Yes (Other)
  Sender: FDA-Public Use
  Company Number: PHHY2012ES009689

PATIENT
  Age: 58 Year
  Sex: Female
  Weight: 73 kg

DRUGS (6)
  1. DEXAMETHASONE [Suspect]
     Indication: VOMITING
     Dosage: 5.12 MG, QD
     Route: 041
     Dates: start: 20120102, end: 20120102
  2. CISPLATIN [Suspect]
     Indication: OESOPHAGEAL NEOPLASM
     Route: 041
     Dates: start: 20120102, end: 20120102
  3. FLUOROURACIL [Suspect]
     Indication: OESOPHAGEAL NEOPLASM
     Dosage: 6750 MG, QD
     Dates: start: 20120102, end: 20120102
  4. DOCETAXEL [Suspect]
     Indication: OESOPHAGEAL NEOPLASM
     Dosage: 135 MG, QD
     Route: 041
     Dates: start: 20120102, end: 20120102
  5. APREPITANT [Suspect]
     Indication: OESOPHAGEAL NEOPLASM
     Dates: start: 20120102, end: 20120102
  6. GRANISETRON [Suspect]
     Indication: VOMITING
     Dosage: 6.3 MG, QD
     Route: 041
     Dates: start: 20120102, end: 20120102

REACTIONS (1)
  - ERYTHEMA [None]
